FAERS Safety Report 14101804 (Version 1)
Quarter: 2017Q4

REPORT INFORMATION
  Report Type: Spontaneous
  Country: US (occurrence: US)
  Receive Date: 20171018
  Receipt Date: 20171018
  Transmission Date: 20180321
  Serious: Yes (Other)
  Sender: FDA-Public Use
  Company Number: None

PATIENT
  Age: 46 Year
  Sex: Female
  Weight: 69.75 kg

DRUGS (1)
  1. LATISSE [Suspect]
     Active Substance: BIMATOPROST
     Indication: SKIN COSMETIC PROCEDURE
     Route: 061
     Dates: start: 20171002, end: 20171009

REACTIONS (1)
  - Madarosis [None]

NARRATIVE: CASE EVENT DATE: 20171002
